FAERS Safety Report 4359031-2 (Version None)
Quarter: 2004Q2

REPORT INFORMATION
  Report Type: 
  Country: None (occurrence: None)
  Receive Date: 20040517
  Receipt Date: 20040127
  Transmission Date: 20050107
  Serious: Yes (Life-Threatening, Hospitalization)
  Sender: FDA-Public Use
  Company Number: FR-GLAXOSMITHKLINE-B0322243A

PATIENT
  Age: 52 Year
  Sex: Male
  Weight: 70 kg

DRUGS (3)
  1. ZINNAT [Suspect]
     Indication: SINUSITIS
     Dosage: 250MG TWICE PER DAY
     Route: 048
     Dates: start: 20031229, end: 20040103
  2. LANZOR 30 [Concomitant]
     Route: 048
  3. COZAAR [Concomitant]
     Indication: HYPERTENSION
     Dosage: 1TAB PER DAY
     Route: 048
     Dates: end: 20040108

REACTIONS (4)
  - ACUTE PULMONARY OEDEMA [None]
  - CLOSTRIDIUM COLITIS [None]
  - LUNG INFECTION PSEUDOMONAL [None]
  - SEPTIC SHOCK [None]
